FAERS Safety Report 8623277-5 (Version None)
Quarter: 2012Q3

REPORT INFORMATION
  Report Type: 
  Country: None (occurrence: None)
  Receive Date: 20120827
  Receipt Date: 20120816
  Transmission Date: 20120928
  Serious: Yes (Other)
  Sender: FDA-Public Use
  Company Number: CN-ASTRAZENECA-2011SE21223

PATIENT
  Age: 800 Month
  Sex: Female
  Weight: 64 kg

DRUGS (6)
  1. ISOSORBIDE MONONITRATE [Concomitant]
  2. VITAMIN [Concomitant]
  3. PREDNISONE [Concomitant]
     Dates: start: 20090901
  4. ARIMIDEX [Suspect]
     Indication: BREAST CANCER
     Route: 048
     Dates: start: 20070626, end: 20110426
  5. ADALAT [Concomitant]
     Indication: HYPERTENSION
     Dates: start: 19930101
  6. TRIPTERYGIUM WILFORDII [Concomitant]

REACTIONS (3)
  - PAROSMIA [None]
  - RENAL FAILURE ACUTE [None]
  - DYSGEUSIA [None]
